FAERS Safety Report 24727468 (Version 2)
Quarter: 2025Q1

REPORT INFORMATION
  Report Type: Spontaneous
  Country: US (occurrence: US)
  Receive Date: 20241212
  Receipt Date: 20250102
  Transmission Date: 20250408
  Serious: Yes (Other)
  Sender: TEVA
  Company Number: US-TEVA-VS-3272075

PATIENT
  Age: 48 Year
  Sex: Male

DRUGS (5)
  1. ACETAZOLAMIDE [Suspect]
     Active Substance: ACETAZOLAMIDE
     Indication: Familial periodic paralysis
     Route: 065
  2. ALBUTEROL [Suspect]
     Active Substance: ALBUTEROL
     Indication: Familial periodic paralysis
     Route: 065
  3. DICHLORPHENAMIDE [Suspect]
     Active Substance: DICHLORPHENAMIDE
     Indication: Familial periodic paralysis
     Route: 065
  4. SEMAGLUTIDE [Suspect]
     Active Substance: SEMAGLUTIDE
     Indication: Familial periodic paralysis
     Route: 065
  5. SEMAGLUTIDE [Suspect]
     Active Substance: SEMAGLUTIDE
     Indication: Familial periodic paralysis
     Route: 065

REACTIONS (2)
  - Drug ineffective [Unknown]
  - Gastrointestinal disorder [Unknown]
